FAERS Safety Report 8968947 (Version 1)
Quarter: 2012Q4

REPORT INFORMATION
  Report Type: 
  Country: US (occurrence: US)
  Receive Date: 20121217
  Receipt Date: 20121217
  Transmission Date: 20130627
  Serious: Yes (Hospitalization)
  Sender: FDA-Public Use
  Company Number: US-BAXTER-2012BAX026980

PATIENT
  Age: 18 Year
  Sex: Female

DRUGS (4)
  1. DIANEAL LOW CALCIUM [Suspect]
     Indication: PERITONEAL DIALYSIS
     Route: 033
     Dates: start: 20081212, end: 20121207
  2. DIANEAL LOW CALCIUM [Suspect]
     Route: 033
     Dates: start: 20121209
  3. DIANEAL LOW CALCIUM (ULTRABAG) [Suspect]
     Indication: PERITONEAL DIALYSIS
     Route: 033
     Dates: start: 20081212, end: 20121207
  4. DIANEAL LOW CALCIUM (ULTRABAG) [Suspect]
     Route: 033
     Dates: start: 20121209

REACTIONS (5)
  - Oedema [Recovered/Resolved]
  - Peritoneal dialysis complication [Recovered/Resolved]
  - Discomfort [Recovered/Resolved]
  - Abdominal pain [Recovered/Resolved]
  - Bloody peritoneal effluent [Unknown]
